FAERS Safety Report 8584636-2 (Version None)
Quarter: 2012Q3

REPORT INFORMATION
  Report Type: 
  Country: None (occurrence: None)
  Receive Date: 20120810
  Receipt Date: 20120807
  Transmission Date: 20120928
  Serious: Yes (Other)
  Sender: FDA-Public Use
  Company Number: US-PFIZER INC-2012192923

PATIENT

DRUGS (1)
  1. GEMFIBROZIL [Suspect]
     Dosage: 600 MG, 2X/DAY

REACTIONS (2)
  - DRUG PRESCRIBING ERROR [None]
  - BLOOD TRIGLYCERIDES INCREASED [None]
